FAERS Safety Report 7244916-X (Version None)
Quarter: 2011Q1

REPORT INFORMATION
  Report Type: 
  Country: None (occurrence: None)
  Receive Date: 20110126
  Receipt Date: 20110119
  Transmission Date: 20110831
  Serious: Yes (Other)
  Sender: FDA-Public Use
  Company Number: US-ELI_LILLY_AND_COMPANY-US201101004802

PATIENT
  Sex: Female

DRUGS (1)
  1. HUMALOG MIX 75/25 [Suspect]
     Indication: DIABETES MELLITUS
     Dosage: 24 U, 2/D
     Dates: start: 19960101

REACTIONS (5)
  - NEUROPATHY PERIPHERAL [None]
  - BLINDNESS [None]
  - UNDERDOSE [None]
  - INTERCEPTED DRUG DISPENSING ERROR [None]
  - MACULAR DEGENERATION [None]
